FAERS Safety Report 16110770 (Version 6)
Quarter: 2021Q3

REPORT INFORMATION
  Report Type: Report from Study
  Country: AT (occurrence: AT)
  Receive Date: 20190325
  Receipt Date: 20210813
  Transmission Date: 20211014
  Serious: Yes (Hospitalization)
  Sender: FDA-Public Use
  Company Number: PHHO2019AT002944

PATIENT
  Age: 21 Year
  Sex: Female
  Weight: 58.5 kg

DRUGS (21)
  1. MEXALEN [Concomitant]
     Active Substance: ACETAMINOPHEN
     Indication: MIGRAINE
     Dosage: UNK
     Route: 065
     Dates: start: 20130301
  2. DESLORATADIN [Concomitant]
     Active Substance: DESLORATADINE
     Indication: RELAPSING MULTIPLE SCLEROSIS
     Dosage: UNK
     Route: 065
     Dates: start: 20190306, end: 20190306
  3. DIBONDRIN [Concomitant]
     Active Substance: DIPHENHYDRAMINE HYDROCHLORIDE
     Indication: RELAPSING MULTIPLE SCLEROSIS
     Dosage: UNK
     Route: 065
     Dates: start: 20190227, end: 20190227
  4. ULSAL [Concomitant]
     Active Substance: RANITIDINE HYDROCHLORIDE
     Indication: PROPHYLAXIS
     Dosage: UNK
     Route: 065
     Dates: start: 20190227, end: 20190227
  5. RINGER LACTAT [Concomitant]
     Indication: PNEUMONIA
     Dosage: UNK
     Route: 065
     Dates: start: 20190312, end: 20190312
  6. FRAXIPARIN [Concomitant]
     Active Substance: NADROPARIN CALCIUM
     Indication: PROPHYLAXIS
     Dosage: UNK
     Route: 065
     Dates: start: 20190313, end: 20190318
  7. OFATUMUMAB [Suspect]
     Active Substance: OFATUMUMAB
     Indication: RELAPSING MULTIPLE SCLEROSIS
     Dosage: 1 DF, ONCE/SINGLE
     Route: 058
     Dates: start: 20190227
  8. PARACETAMOL [Concomitant]
     Active Substance: ACETAMINOPHEN
     Indication: RELAPSING MULTIPLE SCLEROSIS
     Dosage: UNK
     Route: 065
     Dates: start: 20190227, end: 20190227
  9. DESLORATADIN [Concomitant]
     Active Substance: DESLORATADINE
     Dosage: UNK
     Route: 065
     Dates: start: 20190312, end: 20190312
  10. PANTOPRAZOL [Concomitant]
     Active Substance: PANTOPRAZOLE SODIUM
     Indication: PROPHYLAXIS
     Dosage: UNK
     Route: 065
     Dates: start: 20190306, end: 20190306
  11. PARACETAMOL [Concomitant]
     Active Substance: ACETAMINOPHEN
     Dosage: UNK
     Route: 065
     Dates: start: 20190306, end: 20190306
  12. METAMIZOL SODIUM [Concomitant]
     Active Substance: METAMIZOL SODIUM
     Indication: PNEUMONIA
     Dosage: UNK
     Route: 065
     Dates: start: 20190312, end: 20190312
  13. BUSCOPAN [Concomitant]
     Active Substance: BUTYLSCOPOLAMINE BROMIDE
     Indication: PAIN
     Dosage: UNK
     Route: 065
     Dates: start: 20190313, end: 20190313
  14. PERFALGAN [Concomitant]
     Active Substance: ACETAMINOPHEN
     Dosage: UNK
     Route: 065
     Dates: start: 20190316, end: 20190316
  15. PARACETAMOL [Concomitant]
     Active Substance: ACETAMINOPHEN
     Dosage: UNK
     Route: 065
     Dates: start: 20190312, end: 20190312
  16. PERFALGAN [Concomitant]
     Active Substance: ACETAMINOPHEN
     Indication: PAIN
     Dosage: UNK
     Route: 065
     Dates: start: 20190313, end: 20190313
  17. PERFALGAN [Concomitant]
     Active Substance: ACETAMINOPHEN
     Dosage: UNK
     Route: 065
     Dates: start: 20190314, end: 20190315
  18. MEXALEN [Concomitant]
     Active Substance: ACETAMINOPHEN
     Dosage: UNK
     Route: 065
     Dates: start: 20190227, end: 20190227
  19. ELOINE [Concomitant]
     Active Substance: DROSPIRENONE\ETHINYL ESTRADIOL
     Indication: GENERAL PHYSICAL CONDITION
     Dosage: UNK
     Route: 065
     Dates: start: 20150101
  20. PREDNISOLON [Concomitant]
     Active Substance: PREDNISOLONE
     Indication: RELAPSING MULTIPLE SCLEROSIS
     Dosage: UNK
     Route: 065
     Dates: start: 20190227, end: 20190227
  21. APREDNISLON [Concomitant]
     Active Substance: PREDNISOLONE
     Indication: MULTIPLE SCLEROSIS RELAPSE
     Dosage: UNK
     Route: 065
     Dates: start: 20190306, end: 20190306

REACTIONS (1)
  - Pneumonia [Recovered/Resolved]

NARRATIVE: CASE EVENT DATE: 20190313
